FAERS Safety Report 9723148 (Version 1)
Quarter: 2013Q4

REPORT INFORMATION
  Report Type: Spontaneous
  Country: US (occurrence: None)
  Receive Date: 20131127
  Receipt Date: 20131127
  Transmission Date: 20140711
  Serious: Yes (Other)
  Sender: FDA-Public Use
  Company Number: None

PATIENT
  Age: 63 Year
  Sex: Male
  Weight: 78.02 kg

DRUGS (14)
  1. HYDROCODONE-ACETAMINOPHEN [Suspect]
     Indication: BACK PAIN
     Dosage: ONE TABLET
     Route: 048
     Dates: start: 20131116, end: 20131118
  2. HYDROCODONE-ACETAMINOPHEN [Suspect]
     Indication: INTERVERTEBRAL DISC DEGENERATION
     Dosage: ONE TABLET
     Route: 048
     Dates: start: 20131116, end: 20131118
  3. HYDROCODONE-ACETAMINOPHEN [Suspect]
     Indication: SPINAL COLUMN STENOSIS
     Dosage: ONE TABLET
     Route: 048
     Dates: start: 20131116, end: 20131118
  4. HYDROCODONE-ACETAMINOPHEN [Suspect]
     Indication: SURGERY
     Dosage: ONE TABLET
     Route: 048
     Dates: start: 20131116, end: 20131118
  5. HYDROCODONE-ACETAMINOPHEN [Suspect]
     Indication: INTERVERTEBRAL DISC PROTRUSION
     Dosage: ONE TABLET
     Route: 048
     Dates: start: 20131116, end: 20131118
  6. DEXILANT [Concomitant]
  7. TEMAZEPAM [Concomitant]
  8. PRAVASTATIN SODIUM [Concomitant]
  9. CENTRUM SILVER MULTIVITAMIN [Concomitant]
  10. CALCIUM MAGNESIUM ZINC WITH VITAMIN D [Concomitant]
  11. FISH OIL [Concomitant]
  12. ESTER-C [Concomitant]
  13. PHILLIPS COLON HEALTH PROBIOTIC CAPS [Concomitant]
  14. ZYRTEC [Concomitant]

REACTIONS (4)
  - Drug ineffective [None]
  - Product formulation issue [None]
  - Product quality issue [None]
  - Product label issue [None]
